FAERS Safety Report 5163723-5 (Version None)
Quarter: 2006Q4

REPORT INFORMATION
  Report Type: 
  Country: None (occurrence: None)
  Receive Date: 20061204
  Receipt Date: 20061121
  Transmission Date: 20070319
  Serious: Yes (Other)
  Sender: FDA-Public Use
  Company Number: TR-GLAXOSMITHKLINE-B0448389A

PATIENT
  Age: 57 Year
  Sex: Male

DRUGS (2)
  1. CHLORAMBUCIL [Suspect]
     Dosage: 40MG CYCLIC
     Route: 065
     Dates: start: 20050301
  2. PREDNISONE TAB [Concomitant]
     Route: 065
     Dates: start: 20050301

REACTIONS (6)
  - BLISTER [None]
  - CHAPPED LIPS [None]
  - DERMATITIS EXFOLIATIVE [None]
  - ERYTHEMA [None]
  - LIP SWELLING [None]
  - SKIN EXFOLIATION [None]
